FAERS Safety Report 5304335-X (Version None)
Quarter: 2007Q2

REPORT INFORMATION
  Report Type: 
  Country: None (occurrence: None)
  Receive Date: 20070423
  Receipt Date: 20070413
  Transmission Date: 20071010
  Serious: Yes (Other)
  Sender: FDA-Public Use
  Company Number: PHEH2007US05453

PATIENT
  Age: 55 Year
  Sex: Female

DRUGS (8)
  1. ZELNORM [Suspect]
     Indication: CONSTIPATION
     Dosage: UNK, QD
     Route: 048
     Dates: start: 20050101, end: 20051201
  2. LITHIUM CARBONATE [Concomitant]
     Indication: BIPOLAR I DISORDER
  3. REGULAR INSULIN [Concomitant]
     Indication: DIABETES MELLITUS
  4. INSULIN [Concomitant]
     Indication: DIABETES MELLITUS
  5. VIVELLE-DOT [Concomitant]
  6. PARLODEL [Concomitant]
  7. NEURONTIN [Concomitant]
  8. REGLAN [Concomitant]

REACTIONS (8)
  - CHEST PAIN [None]
  - DEPRESSION [None]
  - DIZZINESS [None]
  - FALL [None]
  - HYPERCHOLESTEROLAEMIA [None]
  - HYPOTENSION [None]
  - HYPOTHYROIDISM [None]
  - STOMACH DISCOMFORT [None]
